FAERS Safety Report 6677503-2 (Version None)
Quarter: 2010Q2

REPORT INFORMATION
  Report Type: 
  Country: None (occurrence: None)
  Receive Date: 20100412
  Receipt Date: 20100405
  Transmission Date: 20101027
  Serious: Yes (Other)
  Sender: FDA-Public Use
  Company Number: B0646617A

PATIENT
  Age: 43 Year
  Sex: Female

DRUGS (6)
  1. FOSAMPRENAVIR [Suspect]
     Indication: HIV INFECTION
     Route: 065
     Dates: start: 20050901
  2. RITONAVIR [Concomitant]
     Indication: HIV INFECTION
     Route: 065
     Dates: start: 20050901
  3. ABACAVIR [Concomitant]
     Indication: HIV INFECTION
     Route: 065
     Dates: start: 20050901
  4. LAMIVUDINE [Concomitant]
     Indication: HIV INFECTION
     Route: 065
     Dates: start: 20050901
  5. PEGINTERFERON ALFA-2A [Concomitant]
     Indication: HEPATITIS C
     Dosage: 800MG PER DAY
     Route: 065
     Dates: start: 20060701
  6. RIBAVIRIN [Concomitant]
     Indication: HEPATITIS C
     Route: 065
     Dates: start: 20060701

REACTIONS (5)
  - ASTHENIA [None]
  - DECREASED APPETITE [None]
  - HEPATOMEGALY [None]
  - HEPATOTOXICITY [None]
  - TRANSAMINASES INCREASED [None]
